FAERS Safety Report 21218989 (Version 2)
Quarter: 2022Q3

REPORT INFORMATION
  Report Type: Spontaneous
  Country: IE (occurrence: None)
  Receive Date: 20220816
  Receipt Date: 20220908
  Transmission Date: 20221026
  Serious: Yes (Other)
  Sender: FDA-Public Use
  Company Number: 2022A281116

PATIENT
  Age: 68 Year
  Sex: Male

DRUGS (21)
  1. TICAGRELOR [Suspect]
     Active Substance: TICAGRELOR
     Indication: Percutaneous coronary intervention
     Dosage: FOR 1 YEAR - SINCE PCI IN MAY/2022
     Route: 048
     Dates: start: 202205, end: 202207
  2. PANTOPRAZOLE [Concomitant]
     Active Substance: PANTOPRAZOLE
     Route: 048
  3. SOLIFENACIN SUCCINATE [Concomitant]
     Active Substance: SOLIFENACIN SUCCINATE
     Route: 048
  4. ALBUTEROL SULFATE\IPRATROPIUM BROMIDE [Concomitant]
     Active Substance: ALBUTEROL SULFATE\IPRATROPIUM BROMIDE
     Dosage: T NEBULISED QDS, X2/52 THEN GP TO REVIEW
     Route: 055
  5. MOVICOL [Concomitant]
     Active Substance: POLYETHYLENE GLYCOL 3350\POTASSIUM CHLORIDE\SODIUM BICARBONATE\SODIUM CHLORIDE
     Route: 048
  6. RAMIPRIL [Concomitant]
     Active Substance: RAMIPRIL
     Route: 048
  7. MONTELUKAST SODIUM [Concomitant]
     Active Substance: MONTELUKAST SODIUM
     Route: 048
  8. RANEXA [Concomitant]
     Active Substance: RANOLAZINE
     Route: 048
  9. FOLIC ACID [Concomitant]
     Active Substance: FOLIC ACID
     Route: 048
  10. BISOPROLOL [Concomitant]
     Active Substance: BISOPROLOL
     Route: 048
  11. METFORMIN [Concomitant]
     Active Substance: METFORMIN HYDROCHLORIDE
     Route: 048
  12. BUMETANIDE [Concomitant]
     Active Substance: BUMETANIDE
     Route: 048
  13. DUTASTERIDE\TAMSULOSIN [Concomitant]
     Active Substance: DUTASTERIDE\TAMSULOSIN
     Dosage: 500/400 MCG
     Route: 048
  14. COMBIVENT [Concomitant]
     Active Substance: ALBUTEROL SULFATE\IPRATROPIUM BROMIDE
     Dosage: T NEBULISED QDS
     Route: 055
  15. FYBOGEL CITRUS [Concomitant]
     Dosage: T ORAL BD
     Route: 048
  16. PREDNISOLONE [Concomitant]
     Active Substance: PREDNISOLONE
     Dosage: TAPER DOWN 5MG EVERY 3RD DAY TIL STOP
     Route: 048
  17. ASPIRIN [Concomitant]
     Active Substance: ASPIRIN
     Route: 048
  18. DYMISTA [Concomitant]
     Active Substance: AZELASTINE HYDROCHLORIDE\FLUTICASONE PROPIONATE
     Dosage: 137MCG/50MCG PER ACTUATION
     Route: 045
  19. ATORVASTATIN [Concomitant]
     Active Substance: ATORVASTATIN
     Dosage: NOCTE
     Route: 048
  20. TRELEGY ELLIPTA [Concomitant]
     Active Substance: FLUTICASONE FUROATE\UMECLIDINIUM BROMIDE\VILANTEROL TRIFENATATE
     Dosage: 92/55/22 MCG
     Route: 055
  21. CHOLECALCIFEROL [Concomitant]
     Active Substance: CHOLECALCIFEROL
     Route: 048

REACTIONS (3)
  - Emotional distress [Recovered/Resolved]
  - Loss of personal independence in daily activities [Recovered/Resolved]
  - Dyspnoea at rest [Recovered/Resolved]

NARRATIVE: CASE EVENT DATE: 20220501
